FAERS Safety Report 23112279 (Version 2)
Quarter: 2023Q4

REPORT INFORMATION
  Report Type: Spontaneous
  Country: JP (occurrence: JP)
  Receive Date: 20231026
  Receipt Date: 20231123
  Transmission Date: 20240110
  Serious: Yes (Disabling)
  Sender: FDA-Public Use
  Company Number: JP-JNJFOC-20231060487

PATIENT
  Age: 73 Year
  Sex: Female
  Weight: 42 kg

DRUGS (5)
  1. IMBRUVICA [Suspect]
     Active Substance: IBRUTINIB
     Indication: Waldenstrom^s macroglobulinaemia
     Route: 048
     Dates: start: 20230220
  2. RABEPRAZOLE SODIUM [Concomitant]
     Active Substance: RABEPRAZOLE SODIUM
     Indication: Gastrooesophageal reflux disease
     Route: 048
     Dates: start: 20230217
  3. DECADRON [Concomitant]
     Active Substance: DEXAMETHASONE
     Indication: Nausea
     Route: 048
     Dates: start: 20230215, end: 20230220
  4. SULFAMETHOXAZOLE\TRIMETHOPRIM [Concomitant]
     Active Substance: SULFAMETHOXAZOLE\TRIMETHOPRIM
     Indication: Prophylaxis
     Route: 048
     Dates: start: 20230214
  5. URAPIDIL [Concomitant]
     Active Substance: URAPIDIL
     Indication: Urinary retention
     Route: 048
     Dates: start: 20230215

REACTIONS (1)
  - Sudden hearing loss [Not Recovered/Not Resolved]

NARRATIVE: CASE EVENT DATE: 20230222
